FAERS Safety Report 10524301 (Version 1)
Quarter: 2014Q4

REPORT INFORMATION
  Report Type: Spontaneous
  Country: US (occurrence: None)
  Receive Date: 20141015
  Receipt Date: 20141015
  Transmission Date: 20150528
  Serious: No
  Sender: FDA-Public Use
  Company Number: None

PATIENT
  Sex: Male

DRUGS (1)
  1. FULYZAQ [Suspect]
     Active Substance: CROFELEMER
     Indication: DIARRHOEA
     Route: 048
     Dates: start: 20140715, end: 20141013

REACTIONS (3)
  - Pain [None]
  - Abdominal distension [None]
  - Flatulence [None]
